FAERS Safety Report 6462614-7 (Version None)
Quarter: 2009Q4

REPORT INFORMATION
  Report Type: 
  Country: None (occurrence: None)
  Receive Date: 20091130
  Receipt Date: 20091123
  Transmission Date: 20100525
  Serious: Yes (Hospitalization)
  Sender: FDA-Public Use
  Company Number: FR-PURDUE-GBR-2009-0005853

PATIENT
  Sex: Female

DRUGS (9)
  1. OXYCONTIN [Suspect]
     Indication: ARTHRALGIA
     Dosage: 20 MG, BID
     Route: 048
     Dates: start: 20090901, end: 20091111
  2. OXYNORM CAPSULES 10 MG [Suspect]
     Indication: ARTHRALGIA
     Dosage: 10 MG, Q4H
     Route: 048
     Dates: start: 20090901, end: 20091110
  3. PREVISCAN                          /00789001/ [Concomitant]
     Dosage: 1/2 TO 1/4 TABLET ALTERNATELY
  4. TRIATEC                            /00885601/ [Concomitant]
     Dosage: 5 MG, DAILY
  5. VASTEN                             /00880402/ [Concomitant]
     Dosage: 20 MG, DAILY
  6. EFFEXOR [Concomitant]
     Dosage: 37.5 MG, BID
  7. XANAX [Concomitant]
     Dosage: 0.25 MG, TID
  8. PARACETAMOL [Concomitant]
     Dosage: UNK
  9. MOVICOL                            /01053601/ [Concomitant]
     Dosage: UNK

REACTIONS (9)
  - ASTHENIA [None]
  - DECREASED APPETITE [None]
  - DRUG INTOLERANCE [None]
  - GENERAL PHYSICAL HEALTH DETERIORATION [None]
  - HYPOKALAEMIA [None]
  - INFECTION [None]
  - INTERNATIONAL NORMALISED RATIO INCREASED [None]
  - OVERDOSE [None]
  - VOMITING [None]
